FAERS Safety Report 10028464 (Version 1)
Quarter: 2014Q1

REPORT INFORMATION
  Report Type: Spontaneous
  Country: US (occurrence: None)
  Receive Date: 20140307
  Receipt Date: 20140307
  Transmission Date: 20141002
  Serious: Yes (Other)
  Sender: FDA-Public Use
  Company Number: AUR-APL-2014-02431

PATIENT
  Sex: Male

DRUGS (2)
  1. RISPERIDONE (RISPERIDONE) [Suspect]
     Indication: MENTAL DISORDER
  2. RISPERIDONE (RISPERIDONE) [Suspect]
     Indication: MENTAL DISORDER

REACTIONS (2)
  - Breast swelling [None]
  - Hepatic cancer [None]
